FAERS Safety Report 9816425 (Version 1)
Quarter: 2014Q1

REPORT INFORMATION
  Report Type: Spontaneous
  Country: GB (occurrence: GB)
  Receive Date: 20140114
  Receipt Date: 20140114
  Transmission Date: 20141002
  Serious: Yes (Other)
  Sender: FDA-Public Use
  Company Number: GB-TEVA-454372ISR

PATIENT
  Sex: Male

DRUGS (1)
  1. PREDNISOLONE [Suspect]
     Indication: COLITIS ULCERATIVE
     Dosage: 5 MILLIGRAM DAILY;
     Route: 065
     Dates: start: 1983, end: 201312

REACTIONS (3)
  - Depression [Unknown]
  - Crying [Unknown]
  - Withdrawal syndrome [Unknown]
